FAERS Safety Report 10334126 (Version 3)
Quarter: 2017Q2

REPORT INFORMATION
  Report Type: Spontaneous
  Country: DE (occurrence: DE)
  Receive Date: 20140721
  Receipt Date: 20170601
  Transmission Date: 20170829
  Serious: Yes (Other)
  Sender: FDA-Public Use
  Company Number: DE-SEPTODONT-201402082

PATIENT
  Age: 39 Year
  Sex: Male

DRUGS (1)
  1. SEPTANEST MIT ADRENALIN 1:200,000 [Suspect]
     Active Substance: ARTICAINE HYDROCHLORIDE\EPINEPHRINE BITARTRATE
     Indication: LOCAL ANAESTHESIA
     Route: 004

REACTIONS (8)
  - Erythema [Recovered/Resolved]
  - Restlessness [Recovered/Resolved]
  - Visual impairment [Recovered/Resolved]
  - Sneezing [Recovered/Resolved]
  - Paraesthesia [Recovered/Resolved]
  - Lacrimation increased [Recovered/Resolved]
  - Pallor [Recovered/Resolved]
  - Pulse abnormal [Recovered/Resolved]

NARRATIVE: CASE EVENT DATE: 20140107
